FAERS Safety Report 23554639 (Version 1)
Quarter: 2024Q1

REPORT INFORMATION
  Report Type: Spontaneous
  Country: US (occurrence: None)
  Receive Date: 20240222
  Receipt Date: 20240222
  Transmission Date: 20240410
  Serious: Yes (Hospitalization)
  Sender: FDA-Public Use
  Company Number: None

PATIENT
  Age: 80 Year
  Sex: Male
  Weight: 71 kg

DRUGS (1)
  1. RADIUM RA-223 DICHLORIDE [Suspect]
     Active Substance: RADIUM RA-223 DICHLORIDE

REACTIONS (2)
  - Osteonecrosis [None]
  - Condition aggravated [None]

NARRATIVE: CASE EVENT DATE: 20240131
